FAERS Safety Report 23045818 (Version 1)
Quarter: 2023Q4

REPORT INFORMATION
  Report Type: Spontaneous
  Country: AU (occurrence: AU)
  Receive Date: 20231009
  Receipt Date: 20231009
  Transmission Date: 20240109
  Serious: Yes (Hospitalization, Other)
  Sender: FDA-Public Use
  Company Number: AU-TASMAN PHARMA, INC.-2023TSM00159

PATIENT
  Sex: Male

DRUGS (11)
  1. VERSACLOZ [Suspect]
     Active Substance: CLOZAPINE
     Dosage: 350 MG
     Dates: start: 20230118, end: 20230131
  2. VERSACLOZ [Suspect]
     Active Substance: CLOZAPINE
     Dosage: 300 MG
     Dates: start: 20230318, end: 20230330
  3. CLOZAPINE [Suspect]
     Active Substance: CLOZAPINE
     Dosage: 375 MG
     Dates: start: 20230718, end: 202309
  4. CLOZAPINE [Suspect]
     Active Substance: CLOZAPINE
     Dosage: 150 MG
     Dates: start: 20230201, end: 20230204
  5. CLOZAPINE [Suspect]
     Active Substance: CLOZAPINE
     Dosage: 200 MG
     Dates: start: 20230205, end: 20230208
  6. CLOZAPINE [Suspect]
     Active Substance: CLOZAPINE
     Dosage: 225 MG
     Dates: start: 20230209, end: 20230227
  7. CLOZAPINE [Suspect]
     Active Substance: CLOZAPINE
     Dosage: 275 MG
     Dates: start: 20230228, end: 20230317
  8. CLOZAPINE [Suspect]
     Active Substance: CLOZAPINE
     Dosage: 300 MG
     Dates: start: 20230331, end: 20230427
  9. CLOZAPINE [Suspect]
     Active Substance: CLOZAPINE
     Dosage: 350 MG
     Dates: start: 20230428, end: 20230620
  10. CLOZAPINE [Suspect]
     Active Substance: CLOZAPINE
     Dosage: 375 MG
     Dates: start: 20230621, end: 20230717
  11. LITHIUM [Concomitant]
     Active Substance: LITHIUM
     Dosage: 450 MG

REACTIONS (4)
  - Hospitalisation [Not Recovered/Not Resolved]
  - Neutropenia [Recovered/Resolved]
  - Therapy interrupted [Not Recovered/Not Resolved]
  - Neutrophil count decreased [Recovered/Resolved]

NARRATIVE: CASE EVENT DATE: 20230101
